FAERS Safety Report 6619965-2 (Version None)
Quarter: 2010Q1

REPORT INFORMATION
  Report Type: 
  Country: None (occurrence: None)
  Receive Date: 20100309
  Receipt Date: 20090703
  Transmission Date: 20100710
  Serious: Yes (Other)
  Sender: FDA-Public Use
  Company Number: JP-JNJCH-2009016031

PATIENT
  Age: 70 Year
  Sex: Female

DRUGS (8)
  1. ZYRTEC [Suspect]
     Indication: DRUG USE FOR UNKNOWN INDICATION
     Dosage: TEXT:UNKNOWN
     Route: 048
  2. FERON [Suspect]
     Indication: HEPATITIS C
     Dosage: TEXT:6 MILLION IU, DAILY DOSE FREQ.: DAILY
     Route: 042
     Dates: start: 20080518, end: 20090218
  3. STARSIS [Concomitant]
     Indication: DIABETES MELLITUS
     Dosage: TEXT:UNKNOWN
     Route: 048
  4. OLMESARTAN MEDOXOMIL [Concomitant]
     Indication: HYPERTENSION
     Dosage: TEXT:20 MG
     Route: 048
     Dates: start: 20080812, end: 20090224
  5. CALBLOCK [Concomitant]
     Indication: HYPERTENSION
     Dosage: TEXT:16 MG
     Route: 048
     Dates: start: 20080812, end: 20090224
  6. LOXONIN [Concomitant]
     Indication: DRUG USE FOR UNKNOWN INDICATION
     Dosage: TEXT:UNKNOWN
     Route: 048
  7. ACTOS [Concomitant]
     Indication: DIABETES MELLITUS
     Dosage: TEXT:UNKNOWN
     Route: 065
  8. PARIET [Concomitant]
     Indication: DRUG USE FOR UNKNOWN INDICATION
     Dosage: TEXT:UNKNOWN
     Route: 065

REACTIONS (1)
  - RETINAL HAEMORRHAGE [None]
